FAERS Safety Report 9997639 (Version 1)
Quarter: 2014Q1

REPORT INFORMATION
  Report Type: Spontaneous
  Country: US (occurrence: None)
  Receive Date: 20140225
  Receipt Date: 20140225
  Transmission Date: 20141002
  Serious: Yes (Other)
  Sender: FDA-Public Use
  Company Number: 2013-170

PATIENT
  Age: 54 Year
  Sex: Male

DRUGS (3)
  1. PRIALT (ZICONOTIDE) INTRATHECAL INFUSION [Suspect]
     Indication: PAIN
     Dosage: ONCE/ HOUR
     Route: 037
  2. PRIALT (ZICONOTIDE) INTRATHECAL INFUSION [Suspect]
     Indication: POST LUMBAR PUNCTURE SYNDROME
     Dosage: ONCE/ HOUR
     Route: 037
  3. DILAUDID (HYDROMORPHONE HYDROCHLORIDE) INJECTION [Suspect]
     Indication: PAIN
     Dosage: ONCE/HOUR
     Route: 037

REACTIONS (3)
  - Urinary retention [None]
  - Pain [None]
  - Device issue [None]
